FAERS Safety Report 8434433-3 (Version None)
Quarter: 2012Q2

REPORT INFORMATION
  Report Type: 
  Country: None (occurrence: None)
  Receive Date: 20120614
  Receipt Date: 20120608
  Transmission Date: 20120825
  Serious: Yes (Other)
  Sender: FDA-Public Use
  Company Number: IT-BRISTOL-MYERS SQUIBB COMPANY-16673840

PATIENT
  Age: 73 Year
  Sex: Male

DRUGS (2)
  1. BELATACEPT [Suspect]
     Indication: RENAL TRANSPLANT
     Route: 042
     Dates: start: 20060328
  2. AZATHIOPRINE [Concomitant]
     Indication: RENAL TRANSPLANT
     Route: 048
     Dates: start: 20100216

REACTIONS (1)
  - PROSTATE CANCER [None]
